FAERS Safety Report 9649496 (Version 2)
Quarter: 2013Q4

REPORT INFORMATION
  Report Type: Spontaneous
  Country: US (occurrence: US)
  Receive Date: 20131028
  Receipt Date: 20131028
  Transmission Date: 20140711
  Serious: Yes (Death)
  Sender: FDA-Public Use
  Company Number: US-INCYTE CORPORATION-2013IN001618

PATIENT
  Age: 65 Year
  Sex: Male

DRUGS (16)
  1. JAKAFI [Suspect]
     Indication: MYELOFIBROSIS
     Dosage: 10 MG, BID
     Route: 048
     Dates: start: 201208, end: 201307
  2. MORPHINE [Concomitant]
  3. ZOFRAN [Concomitant]
  4. CRESTOR [Concomitant]
  5. ACYCLOVIR [Concomitant]
  6. VITAMIN D [Concomitant]
  7. COLACE [Concomitant]
  8. PEPCID [Concomitant]
  9. DIFLUCAN [Concomitant]
  10. HYDROXYZINE [Concomitant]
  11. LEVAQUIN [Concomitant]
  12. SYNTHROID [Concomitant]
  13. MEGESTROL [Concomitant]
  14. LOPRESSOR [Concomitant]
  15. SENNA [Concomitant]
  16. DIMETHICONE [Concomitant]

REACTIONS (2)
  - Death [Fatal]
  - Platelet count decreased [Recovering/Resolving]
